FAERS Safety Report 10169597 (Version 3)
Quarter: 2014Q2

REPORT INFORMATION
  Report Type: Spontaneous
  Country: FR (occurrence: FR)
  Receive Date: 20140513
  Receipt Date: 20140618
  Transmission Date: 20141212
  Serious: Yes (Hospitalization)
  Sender: FDA-Public Use
  Company Number: FR-ASTRAZENECA-2014SE31198

PATIENT
  Age: 69 Year
  Sex: Male

DRUGS (10)
  1. INEXIUM [Suspect]
     Route: 048
     Dates: start: 20130912, end: 20130919
  2. SPIFEN [Suspect]
     Indication: LUNG INFECTION
     Route: 048
     Dates: start: 20130912, end: 20130919
  3. RHINOTROPHYL [Suspect]
     Indication: LUNG INFECTION
     Route: 045
     Dates: start: 20130912, end: 20130919
  4. DIMETHANE [Suspect]
     Indication: LUNG INFECTION
     Route: 048
     Dates: start: 20130912, end: 20130919
  5. ORELOX [Suspect]
     Indication: LUNG INFECTION
     Route: 048
     Dates: start: 20130912, end: 20130919
  6. ALTEIS [Suspect]
     Route: 065
     Dates: start: 2013, end: 2013
  7. KARDEGIC [Concomitant]
     Route: 048
  8. TAHOR [Concomitant]
     Route: 048
  9. FELODIPINE [Concomitant]
  10. AERIUS [Concomitant]
     Route: 048

REACTIONS (6)
  - Dysphonia [Recovered/Resolved]
  - Eyelid oedema [Recovered/Resolved]
  - Urticaria [Recovered/Resolved]
  - Face oedema [Recovered/Resolved]
  - Angioedema [Recovered/Resolved]
  - Urticaria [Recovered/Resolved]
